FAERS Safety Report 16350009 (Version 1)
Quarter: 2019Q2

REPORT INFORMATION
  Report Type: Spontaneous
  Country: US (occurrence: US)
  Receive Date: 20190523
  Receipt Date: 20190523
  Transmission Date: 20190711
  Serious: Yes (Other)
  Sender: FDA-Public Use
  Company Number: US-PFIZER INC-2019214414

PATIENT
  Age: 68 Year
  Sex: Female
  Weight: 86.18 kg

DRUGS (1)
  1. REVATIO [Suspect]
     Active Substance: SILDENAFIL CITRATE
     Indication: CARDIAC FAILURE CONGESTIVE
     Dosage: 40 MG (20 MG, TWO TABLETS), THREE TIMES A DAY
     Dates: start: 2010

REACTIONS (6)
  - Cardiovascular disorder [Unknown]
  - Neuropathy peripheral [Unknown]
  - Product use issue [Unknown]
  - Product use in unapproved indication [Unknown]
  - Arthritis [Unknown]
  - Gout [Unknown]

NARRATIVE: CASE EVENT DATE: 2010
